FAERS Safety Report 11910759 (Version 1)
Quarter: 2016Q1

REPORT INFORMATION
  Report Type: Spontaneous
  Country: US (occurrence: US)
  Receive Date: 20160112
  Receipt Date: 20160112
  Transmission Date: 20160526
  Serious: Yes (Disabling, Other)
  Sender: FDA-Public Use
  Company Number: US-PFIZER INC-2015477964

PATIENT
  Age: 59 Year
  Sex: Female

DRUGS (4)
  1. VICODIN [Concomitant]
     Active Substance: ACETAMINOPHEN\HYDROCODONE BITARTRATE
     Dosage: UNK DF, AS NEEDED (5/300, 1 Q 4-6 HOURS P.R.N)
  2. FEMARA [Suspect]
     Active Substance: LETROZOLE
     Dosage: UNK
  3. XGEVA [Concomitant]
     Active Substance: DENOSUMAB
  4. IBRANCE [Suspect]
     Active Substance: PALBOCICLIB
     Dosage: 125 MG, CYCLIC (21 DAYS THEN 7 DAYS)

REACTIONS (5)
  - Bone marrow failure [Unknown]
  - Back pain [Unknown]
  - Musculoskeletal chest pain [Unknown]
  - Pain in extremity [Unknown]
  - Urinary tract infection [Unknown]
